FAERS Safety Report 6378413-0 (Version None)
Quarter: 2009Q3

REPORT INFORMATION
  Report Type: 
  Country: None (occurrence: None)
  Receive Date: 20090925
  Receipt Date: 20070402
  Transmission Date: 20100115
  Serious: Yes (Hospitalization, Other)
  Sender: FDA-Public Use
  Company Number: US-ASTRAZENECA-2007UW02400

PATIENT
  Age: 12157 Day
  Sex: Female
  Weight: 95.5 kg

DRUGS (20)
  1. SEROQUEL [Suspect]
     Indication: SCHIZOAFFECTIVE DISORDER
     Dosage: 25-600 MG
     Route: 048
     Dates: start: 20050601
  2. SEROQUEL [Suspect]
     Route: 048
     Dates: start: 20050601
  3. SEROQUEL [Suspect]
     Route: 048
     Dates: start: 20051024
  4. SEROQUEL [Suspect]
     Route: 048
     Dates: start: 20051205
  5. SEROQUEL [Suspect]
     Dosage: 200MG, 3 TABLETS AT NIGHT
     Route: 048
     Dates: start: 20061208
  6. SEROQUEL [Suspect]
     Route: 048
     Dates: start: 20051028
  7. RISPERDAL [Suspect]
     Indication: SCHIZOAFFECTIVE DISORDER
     Dosage: DOSE: 1 MG
  8. ZYPREXA [Suspect]
     Indication: MENTAL DISORDER
     Dosage: DOSE: 5 MG
     Dates: end: 20050201
  9. ZYPREXA [Suspect]
     Dates: start: 20050201, end: 20050212
  10. ABILIFY [Concomitant]
     Dosage: DOSE: 15 MG
     Dates: start: 20051005
  11. TRILAFON [Concomitant]
     Dosage: DOSE UNKNOWN
  12. TRILEPTAL [Concomitant]
     Dosage: DOSE 300 MG
     Dates: start: 20051005, end: 20061021
  13. DEPAKOTE [Concomitant]
     Dosage: DOSE UNKNOWN
     Dates: start: 20050215, end: 20050907
  14. MELLARIL [Concomitant]
     Dates: start: 20050301, end: 20050601
  15. PRILOSEC OTC [Concomitant]
     Dosage: EVERY MORNING
     Dates: start: 20051024
  16. HYDROCHLOROTHIAZIDE [Concomitant]
     Dates: start: 20050104
  17. KLONOPIN [Concomitant]
     Dates: start: 20051024
  18. KLONOPIN [Concomitant]
     Dates: start: 20061208
  19. PROTONIX [Concomitant]
     Route: 048
     Dates: start: 20050104
  20. ASPIRIN [Concomitant]
     Dates: start: 20051024

REACTIONS (6)
  - DIABETES MELLITUS INADEQUATE CONTROL [None]
  - DYSLIPIDAEMIA [None]
  - GALACTORRHOEA [None]
  - HYPERLIPIDAEMIA [None]
  - TYPE 1 DIABETES MELLITUS [None]
  - WEIGHT INCREASED [None]
